FAERS Safety Report 20323050 (Version 1)
Quarter: 2022Q1

REPORT INFORMATION
  Report Type: Spontaneous
  Country: PT (occurrence: PT)
  Receive Date: 20220111
  Receipt Date: 20220111
  Transmission Date: 20220424
  Serious: Yes (Other)
  Sender: FDA-Public Use
  Company Number: None

PATIENT
  Age: 58 Year
  Sex: Female

DRUGS (1)
  1. IBUPROFEN [Suspect]
     Active Substance: IBUPROFEN
     Indication: Arthralgia
     Dosage: UNK
     Route: 048
     Dates: start: 20180901

REACTIONS (2)
  - Erythema [Recovered/Resolved]
  - Eyelids pruritus [Recovered/Resolved]

NARRATIVE: CASE EVENT DATE: 20180901
